FAERS Safety Report 6551874-X (Version None)
Quarter: 2010Q1

REPORT INFORMATION
  Report Type: 
  Country: None (occurrence: None)
  Receive Date: 20100120
  Receipt Date: 20100106
  Transmission Date: 20100710
  Serious: Yes (Hospitalization)
  Sender: FDA-Public Use
  Company Number: 2009EN000321

PATIENT
  Age: 11 Year
  Sex: Female
  Weight: 36.5146 kg

DRUGS (15)
  1. ONCASPAR [Suspect]
     Indication: CHEMOTHERAPY
     Dosage: 750  IU/ML;QM;IM
     Route: 030
     Dates: start: 20090808
  2. ANIDULAFUNGIN [Suspect]
     Indication: SYSTEMIC CANDIDA
     Dosage: 137.9 MG;QD;IV; 69 ML;QD;IV
     Route: 042
     Dates: start: 20090917, end: 20090917
  3. ANIDULAFUNGIN [Suspect]
     Indication: SYSTEMIC CANDIDA
     Dosage: 137.9 MG;QD;IV; 69 ML;QD;IV
     Route: 042
     Dates: start: 20090918, end: 20090926
  4. FLUCONAZOLE [Suspect]
     Indication: SYSTEMIC CANDIDA
     Dosage: 200 MG;QD;PO
     Route: 048
     Dates: start: 20090927
  5. METHOTREXATE [Suspect]
     Indication: CHEMOTHERAPY
     Dosage: 15 MG; INTH
     Route: 037
     Dates: start: 20090811
  6. VINCRISTINE [Suspect]
     Indication: CHEMOTHERAPY
     Dosage: 1.7 MG;IV
     Route: 042
     Dates: start: 20090922, end: 20090922
  7. MERCAPTOPURINE [Suspect]
     Indication: CHEMOTHERAPY
     Dosage: 75 MG;QD;PO
     Route: 048
     Dates: start: 20090916, end: 20090924
  8. ACETAMINOPHEN [Concomitant]
  9. SULFATRIM [Concomitant]
  10. IV FLUIDS [Concomitant]
  11. HEPARIN [Concomitant]
  12. SODIUM CHLORIDE [Concomitant]
  13. PROPOFOL [Concomitant]
  14. SEVOFLURANE [Concomitant]
  15. ONDANSETRON [Concomitant]

REACTIONS (7)
  - AGGRESSION [None]
  - AGITATION [None]
  - CANDIDIASIS [None]
  - CRYING [None]
  - INCOHERENT [None]
  - LIVER ABSCESS [None]
  - SCREAMING [None]
